FAERS Safety Report 16711686 (Version 1)
Quarter: 2019Q3

REPORT INFORMATION
  Report Type: Spontaneous
  Country: US (occurrence: US)
  Receive Date: 20190816
  Receipt Date: 20190816
  Transmission Date: 20191004
  Serious: Yes (Hospitalization, Other)
  Sender: FDA-Public Use
  Company Number: US-ABBVIE-19K-163-2889876-00

PATIENT
  Sex: Female

DRUGS (1)
  1. CREON [Suspect]
     Active Substance: PANCRELIPASE AMYLASE\PANCRELIPASE LIPASE\PANCRELIPASE PROTEASE
     Indication: PRODUCT USED FOR UNKNOWN INDICATION
     Route: 048

REACTIONS (8)
  - Pain [Unknown]
  - Diarrhoea [Unknown]
  - Stress [Unknown]
  - Pancreatic disorder [Unknown]
  - Hypertension [Unknown]
  - Muscle spasms [Unknown]
  - Glaucoma [Unknown]
  - Dyspepsia [Unknown]

NARRATIVE: CASE EVENT DATE: 201411
